FAERS Safety Report 7832638-3 (Version None)
Quarter: 2011Q4

REPORT INFORMATION
  Report Type: 
  Country: None (occurrence: None)
  Receive Date: 20111024
  Receipt Date: 20111012
  Transmission Date: 20120403
  Serious: No
  Sender: FDA-Public Use
  Company Number: US-BIOGENIDEC-2011BI035577

PATIENT
  Age: 47 Year
  Sex: Female

DRUGS (2)
  1. MUSCLE RELAXER [Concomitant]
  2. TYSABRI [Suspect]
     Indication: MULTIPLE SCLEROSIS
     Route: 042
     Dates: start: 20110913

REACTIONS (20)
  - HYPERHIDROSIS [None]
  - ABDOMINAL PAIN UPPER [None]
  - SLEEP TALKING [None]
  - DYSGEUSIA [None]
  - PAIN [None]
  - VOMITING [None]
  - TREMOR [None]
  - ABNORMAL DREAMS [None]
  - DYSPNOEA [None]
  - NAUSEA [None]
  - GENERAL SYMPTOM [None]
  - CHEST DISCOMFORT [None]
  - HEADACHE [None]
  - PAIN IN EXTREMITY [None]
  - WEIGHT DECREASED [None]
  - VEIN PAIN [None]
  - FEELING HOT [None]
  - OEDEMA PERIPHERAL [None]
  - ERYTHEMA [None]
  - DECREASED APPETITE [None]
